FAERS Safety Report 8794050 (Version 1)
Quarter: 2012Q4

REPORT INFORMATION
  Report Type: 
  Country: US (occurrence: US)
  Receive Date: 20120917
  Receipt Date: 20120917
  Transmission Date: 20130627
  Serious: Yes (Death, Hospitalization)
  Sender: FDA-Public Use
  Company Number: PHHY2012US079522

PATIENT
  Age: 62 Year
  Sex: Female

DRUGS (3)
  1. PAMIDRONATE [Suspect]
     Indication: HYPERCALCAEMIA
     Dosage: 60 mg, UNK
     Route: 042
  2. CALCITONIN [Suspect]
     Dosage: 400 IU, per day
     Route: 058
  3. ZOLEDRONIC ACID [Suspect]
     Dosage: 4 mg, UNK

REACTIONS (12)
  - Thrombocytopenia [Fatal]
  - Bone marrow failure [Fatal]
  - Haemorrhage [Fatal]
  - Chloroma [Fatal]
  - Myelofibrosis [Fatal]
  - Fluid overload [Unknown]
  - Hypercalcaemia [Unknown]
  - Abdominal pain [Unknown]
  - Headache [Unknown]
  - Renal impairment [Unknown]
  - Hepatic lesion [Unknown]
  - Hypotension [Unknown]
